FAERS Safety Report 19812615 (Version 3)
Quarter: 2023Q4

REPORT INFORMATION
  Report Type: Spontaneous
  Country: DE (occurrence: DE)
  Receive Date: 20210910
  Receipt Date: 20231007
  Transmission Date: 20240109
  Serious: Yes (Other)
  Sender: FDA-Public Use
  Company Number: DE-BOEHRINGER INGELHEIM GMBH, GERMANY-2015-BI-47431DE

PATIENT
  Age: 65 Year
  Sex: Male
  Weight: 68 kg

DRUGS (4)
  1. DOCETAXEL [Suspect]
     Active Substance: DOCETAXEL
     Indication: Lung adenocarcinoma
     Dosage: 65 MILLIGRAM/SQ. METER (60MG/M2 BODY SURFACE AREA)
     Route: 042
     Dates: start: 20150710
  2. DOCETAXEL [Suspect]
     Active Substance: DOCETAXEL
     Indication: Non-small cell lung cancer
     Dosage: 75 MILLIGRAM/SQ. METER, ONCE A DAY (FORMULATION: LIQUID, 75MG./M2 BSA)
     Route: 065
     Dates: start: 20150710
  3. NINTEDANIB [Suspect]
     Active Substance: NINTEDANIB
     Indication: Lung adenocarcinoma
     Dosage: 200 MILLIGRAM, ONCE A DAY
     Route: 048
     Dates: start: 20150710
  4. NINTEDANIB [Suspect]
     Active Substance: NINTEDANIB
     Indication: Non-small cell lung cancer
     Dosage: 200 MILLIGRAM
     Route: 048
     Dates: start: 20150711

REACTIONS (8)
  - Erythema multiforme [Recovered/Resolved]
  - Stomatitis [Recovered/Resolved]
  - Dyspnoea [Recovered/Resolved]
  - Hypersensitivity [Recovered/Resolved]
  - Constipation [Recovered/Resolved]
  - Diarrhoea [Recovered/Resolved]
  - Back pain [Recovered/Resolved]
  - Mucosal inflammation [Recovered/Resolved]

NARRATIVE: CASE EVENT DATE: 20150711
